FAERS Safety Report 16051873 (Version 1)
Quarter: 2019Q1

REPORT INFORMATION
  Report Type: Spontaneous
  Country: IT (occurrence: IT)
  Receive Date: 20190308
  Receipt Date: 20190308
  Transmission Date: 20190418
  Serious: Yes (Hospitalization, Other)
  Sender: FDA-Public Use
  Company Number: IT-ALEXION-A201903286

PATIENT
  Sex: Female

DRUGS (1)
  1. SOLIRIS [Suspect]
     Active Substance: ECULIZUMAB
     Indication: ATYPICAL HAEMOLYTIC URAEMIC SYNDROME
     Dosage: UNK
     Route: 065
     Dates: start: 201507

REACTIONS (5)
  - Fabry^s disease [Unknown]
  - Aortic valve incompetence [Unknown]
  - Dyspnoea at rest [Unknown]
  - Mitral valve incompetence [Unknown]
  - Alopecia [Unknown]

NARRATIVE: CASE EVENT DATE: 201712
